FAERS Safety Report 7591961-0 (Version None)
Quarter: 2011Q2

REPORT INFORMATION
  Report Type: 
  Country: None (occurrence: None)
  Receive Date: 20110606
  Receipt Date: 20110322
  Transmission Date: 20111010
  Serious: Yes (Other)
  Sender: FDA-Public Use
  Company Number: US-SEPTODONT-201100054

PATIENT
  Age: 74 Year
  Sex: Female

DRUGS (1)
  1. SEPTOCAINE [Suspect]
     Indication: LOCAL ANAESTHESIA
     Dosage: 1 CARPULE DENTAL
     Route: 004
     Dates: start: 20100730, end: 20100730

REACTIONS (3)
  - HYPOAESTHESIA [None]
  - RHINORRHOEA [None]
  - LIP SWELLING [None]
